FAERS Safety Report 19468364 (Version 2)
Quarter: 2022Q2

REPORT INFORMATION
  Report Type: Spontaneous
  Country: US (occurrence: US)
  Receive Date: 20210628
  Receipt Date: 20220628
  Transmission Date: 20220720
  Serious: Yes (Other)
  Sender: FDA-Public Use
  Company Number: US-MEDEXUS PHARMA, INC.-2021MED00136

PATIENT
  Age: 55 Year
  Sex: Female

DRUGS (12)
  1. RASUVO [Suspect]
     Active Substance: METHOTREXATE SODIUM
     Indication: Rheumatoid arthritis
     Dosage: 15 MG, 1X/WEEK, INJECTED IN STOMACH
     Dates: end: 2021
  2. RASUVO [Suspect]
     Active Substance: METHOTREXATE SODIUM
     Indication: Rheumatoid arthritis
  3. ROPINIROLE [Concomitant]
     Active Substance: ROPINIROLE
     Dosage: 1 MG, 2-3X/DAY
  4. LOSARTAN [Concomitant]
     Active Substance: LOSARTAN
     Dosage: 100 MG, 2X/DAY
  5. FOLIC ACID [Concomitant]
     Active Substance: FOLIC ACID
     Dosage: 1 MG, 1X/DAY
  6. ONDANSETRON [Concomitant]
     Active Substance: ONDANSETRON
     Dosage: 4 UNK
  7. METOPROLOL SUCCINATE [Concomitant]
     Active Substance: METOPROLOL SUCCINATE
     Dosage: 25 MG, 1X/DAY
  8. LEVOTHYROXINE [Concomitant]
     Active Substance: LEVOTHYROXINE
     Dosage: UNK ?G
  9. DULOXETINE [Concomitant]
     Active Substance: DULOXETINE
     Dosage: 30 MG, 2X/DAY
  10. LOVASTATIN [Concomitant]
     Active Substance: LOVASTATIN
     Dosage: 1X/DAY
  11. DICLOFENAC [Concomitant]
     Active Substance: DICLOFENAC
     Route: 061
  12. NIFEDIPINE [Concomitant]
     Active Substance: NIFEDIPINE
     Dosage: 1X/DAY

REACTIONS (11)
  - Cerebrovascular accident [Recovered/Resolved]
  - Hallucination [Recovered/Resolved]
  - Rheumatoid arthritis [Not Recovered/Not Resolved]
  - Brain operation [Unknown]
  - Migraine with aura [Recovered/Resolved]
  - Crying [Not Recovered/Not Resolved]
  - Paraesthesia [Not Recovered/Not Resolved]
  - Hypoaesthesia [Not Recovered/Not Resolved]
  - Product dose omission issue [Not Recovered/Not Resolved]
  - COVID-19 [Unknown]
  - Illness [Unknown]

NARRATIVE: CASE EVENT DATE: 20210401
